FAERS Safety Report 5595310-9 (Version None)
Quarter: 2008Q1

REPORT INFORMATION
  Report Type: 
  Country: None (occurrence: None)
  Receive Date: 20080117
  Receipt Date: 20080110
  Transmission Date: 20080703
  Serious: Yes (Life-Threatening)
  Sender: FDA-Public Use
  Company Number: FR-MERCK-0801FRA00047

PATIENT
  Age: 50 Year
  Sex: Female

DRUGS (12)
  1. PRIMAXIN [Suspect]
     Indication: PERITONITIS
     Route: 042
     Dates: start: 20070821, end: 20070910
  2. PRIMAXIN [Suspect]
     Route: 042
     Dates: start: 20070913, end: 20070914
  3. PRIMAXIN [Suspect]
     Indication: LARGE INTESTINE PERFORATION
     Route: 042
     Dates: start: 20070821, end: 20070910
  4. PRIMAXIN [Suspect]
     Route: 042
     Dates: start: 20070913, end: 20070914
  5. TEICOPLANIN [Suspect]
     Indication: PERITONITIS
     Route: 042
     Dates: start: 20070821, end: 20070910
  6. TEICOPLANIN [Suspect]
     Route: 042
     Dates: start: 20070913, end: 20070914
  7. TEICOPLANIN [Suspect]
     Indication: LARGE INTESTINE PERFORATION
     Route: 042
     Dates: start: 20070821, end: 20070910
  8. TEICOPLANIN [Suspect]
     Route: 042
     Dates: start: 20070913, end: 20070914
  9. LEVOTHYROXINE SODIUM [Concomitant]
     Indication: HYPOTHYROIDISM
     Route: 048
  10. ACEPROMAZINE AND ACEPROMETAZINE AND CLORAZEPATE DIPOTASSIUM [Concomitant]
     Route: 048
  11. TETRAZEPAM [Concomitant]
     Route: 048
  12. PRAZEPAM [Concomitant]
     Route: 048

REACTIONS (2)
  - AGRANULOCYTOSIS [None]
  - SEPTIC SHOCK [None]
